FAERS Safety Report 13486137 (Version 1)
Quarter: 2017Q2

REPORT INFORMATION
  Report Type: Spontaneous
  Country: US (occurrence: US)
  Receive Date: 20170426
  Receipt Date: 20170426
  Transmission Date: 20170830
  Serious: Yes (Other)
  Sender: FDA-Public Use
  Company Number: None

PATIENT
  Age: 52 Year
  Sex: Female
  Weight: 49.05 kg

DRUGS (2)
  1. VAGIFEM [Concomitant]
     Active Substance: ESTRADIOL
  2. PROLIA [Suspect]
     Active Substance: DENOSUMAB
     Indication: OSTEOPOROSIS
     Dosage: ?          QUANTITY:2 INJECTION(S);OTHER FREQUENCY:YEARLY;?
     Route: 030
     Dates: start: 20141001, end: 20160504

REACTIONS (9)
  - Movement disorder [None]
  - Pyrexia [None]
  - Loss of personal independence in daily activities [None]
  - Arthralgia [None]
  - Joint range of motion decreased [None]
  - Myalgia [None]
  - Gait disturbance [None]
  - Groin pain [None]
  - Periarthritis [None]

NARRATIVE: CASE EVENT DATE: 20160701
